FAERS Safety Report 16157498 (Version 2)
Quarter: 2019Q2

REPORT INFORMATION
  Report Type: Spontaneous
  Country: US (occurrence: US)
  Receive Date: 20190404
  Receipt Date: 20190408
  Transmission Date: 20190711
  Serious: No
  Sender: FDA-Public Use
  Company Number: US-PFIZER INC-2019135444

PATIENT
  Sex: Male

DRUGS (2)
  1. EFFEXOR [Suspect]
     Active Substance: VENLAFAXINE HYDROCHLORIDE
     Dosage: 25 MG, UNK
     Dates: start: 201903
  2. EFFEXOR [Suspect]
     Active Substance: VENLAFAXINE HYDROCHLORIDE
     Dosage: 12.5 MG, UNK
     Dates: start: 20190312, end: 201903

REACTIONS (6)
  - Peripheral swelling [Unknown]
  - Anxiety [Unknown]
  - Weight increased [Unknown]
  - Fluid retention [Unknown]
  - Asthenia [Unknown]
  - Dizziness [Unknown]
